FAERS Safety Report 14461471 (Version 3)
Quarter: 2018Q1

REPORT INFORMATION
  Report Type: Report from Study
  Country: DE (occurrence: DE)
  Receive Date: 20180130
  Receipt Date: 20180329
  Transmission Date: 20180509
  Serious: Yes (Hospitalization, Other)
  Sender: FDA-Public Use
  Company Number: PHHY2018DE008423

PATIENT
  Age: 77 Year
  Sex: Female
  Weight: 60 kg

DRUGS (3)
  1. EXJADE [Suspect]
     Active Substance: DEFERASIROX
     Indication: MYELODYSPLASTIC SYNDROME
     Dosage: 90 MG, UNK (360MG) (14MG/KG BODY WEIGHT/DAY (1 TAB 90MG SND 2 TAB 360MG)
     Route: 048
     Dates: start: 20170308, end: 20170525
  2. LERCANIDIPINA [Concomitant]
     Active Substance: LERCANIDIPINE
     Indication: HYPERTENSION
     Dosage: 5 MG, QD
     Route: 065
  3. EXJADE [Suspect]
     Active Substance: DEFERASIROX
     Dosage: 90 MG, UNK (360MG) (14MG/KG BODY WEIGHT/DAY (1 TAB 90MG SND 2 TAB 360MG)
     Route: 048
     Dates: start: 20170619, end: 20170831

REACTIONS (5)
  - Vomiting [Recovered/Resolved]
  - Constipation [Unknown]
  - Cardiac failure [Unknown]
  - Nausea [Recovered/Resolved]
  - Renal failure [Recovered/Resolved]

NARRATIVE: CASE EVENT DATE: 20170830
